FAERS Safety Report 10524590 (Version 2)
Quarter: 2014Q4

REPORT INFORMATION
  Report Type: Spontaneous
  Country: US (occurrence: US)
  Receive Date: 20141017
  Receipt Date: 20141024
  Transmission Date: 20150528
  Serious: Yes (Hospitalization)
  Sender: FDA-Public Use
  Company Number: US-AMGEN-USASP2014079751

PATIENT
  Age: 69 Year
  Sex: Male

DRUGS (1)
  1. ENBREL [Suspect]
     Active Substance: ETANERCEPT
     Indication: PSORIASIS
     Dosage: 50 MG, QWK
     Route: 058
     Dates: start: 2009

REACTIONS (8)
  - Vomiting [Recovered/Resolved]
  - Weight decreased [Recovered/Resolved]
  - Memory impairment [Recovering/Resolving]
  - Decreased appetite [Recovered/Resolved]
  - Headache [Recovering/Resolving]
  - Dizziness [Recovered/Resolved]
  - Seizure [Recovering/Resolving]
  - Accident [Recovered/Resolved]

NARRATIVE: CASE EVENT DATE: 201310
